FAERS Safety Report 21783637 (Version 1)
Quarter: 2022Q4

REPORT INFORMATION
  Report Type: Report from Study
  Country: US (occurrence: US)
  Receive Date: 20221227
  Receipt Date: 20221227
  Transmission Date: 20230112
  Serious: No
  Sender: FDA-Public Use
  Company Number: US-ABBVIE-4202839

PATIENT
  Sex: Male

DRUGS (2)
  1. SKYRIZI [Suspect]
     Active Substance: RISANKIZUMAB-RZAA
     Indication: Psoriasis
     Dosage: WEEK 4 FIRST ADMIN DATE 2022.?FORM STRENGTH 150 MILLIGRAM?THE ONSET DATE FOR ADVERSE EVENTS FLARE...
     Route: 058
  2. SKYRIZI [Suspect]
     Active Substance: RISANKIZUMAB-RZAA
     Dosage: WEEK 0?ONE IN ONCE
     Route: 058
     Dates: start: 202209, end: 202209

REACTIONS (1)
  - Psoriasis [Not Recovered/Not Resolved]
